FAERS Safety Report 9715933 (Version 1)
Quarter: 2013Q4

REPORT INFORMATION
  Report Type: Spontaneous
  Country: US (occurrence: US)
  Receive Date: 20131127
  Receipt Date: 20131127
  Transmission Date: 20140711
  Serious: Yes (Other)
  Sender: FDA-Public Use
  Company Number: US-PERRIGO-13US012048

PATIENT
  Age: 2 Year
  Sex: Female
  Weight: 10.43 kg

DRUGS (1)
  1. DIPHENHYDRAMINE HYDROCHLORIDE 2.5 MG/ML CHERRY 379 [Suspect]
     Indication: ACCIDENTAL EXPOSURE TO PRODUCT
     Dosage: 37.5 MG, SINGLE
     Route: 048
     Dates: start: 20131119, end: 20131119

REACTIONS (4)
  - Hallucination [Unknown]
  - Somnambulism [Unknown]
  - Accidental exposure to product [Recovered/Resolved]
  - Restlessness [Unknown]
